FAERS Safety Report 17504933 (Version 1)
Quarter: 2020Q1

REPORT INFORMATION
  Report Type: Spontaneous
  Country: JP (occurrence: JP)
  Receive Date: 20200305
  Receipt Date: 20200305
  Transmission Date: 20200409
  Serious: Yes (Other)
  Sender: FDA-Public Use
  Company Number: NVSJ2020JP002856

PATIENT
  Age: 67 Year
  Sex: Male

DRUGS (1)
  1. ZOMETA [Suspect]
     Active Substance: ZOLEDRONIC ACID
     Indication: METASTASES TO BONE
     Dosage: UNK
     Route: 042
     Dates: start: 201203

REACTIONS (4)
  - Exposed bone in jaw [Recovering/Resolving]
  - Osteonecrosis of jaw [Recovering/Resolving]
  - Skin odour abnormal [Recovering/Resolving]
  - Pain [Recovering/Resolving]
